FAERS Safety Report 19244188 (Version 2)
Quarter: 2021Q2

REPORT INFORMATION
  Report Type: Other
  Country: IT (occurrence: IT)
  Receive Date: 20210512
  Receipt Date: 20210514
  Transmission Date: 20210717
  Serious: Yes (Hospitalization)
  Sender: FDA-Public Use
  Company Number: IT-CELLTRION INC.-2021IT006200

PATIENT

DRUGS (1)
  1. TRUXIMA [Suspect]
     Active Substance: RITUXIMAB-ABBS
     Indication: ENCEPHALITIS
     Dosage: 500 MG, CYCLIC
     Route: 042
     Dates: start: 20190901, end: 20191231

REACTIONS (3)
  - Hypogammaglobulinaemia [Not Recovered/Not Resolved]
  - Off label use [Unknown]
  - Immunosuppression [Not Recovered/Not Resolved]

NARRATIVE: CASE EVENT DATE: 20200821
